FAERS Safety Report 24845329 (Version 2)
Quarter: 2025Q1

REPORT INFORMATION
  Report Type: Report from Study
  Country: CA (occurrence: CA)
  Receive Date: 20250115
  Receipt Date: 20250122
  Transmission Date: 20250409
  Serious: Yes (Hospitalization, Other)
  Sender: MYLAN
  Company Number: CA-MYLANLABS-2025M1003010

PATIENT
  Age: 39 Year
  Sex: Male

DRUGS (18)
  1. EFFEXOR [Suspect]
     Active Substance: VENLAFAXINE HYDROCHLORIDE
     Indication: Back pain
     Route: 065
  2. ENTYVIO [Suspect]
     Active Substance: VEDOLIZUMAB
     Indication: Crohn^s disease
     Route: 042
     Dates: start: 20191018
  3. ENTYVIO [Suspect]
     Active Substance: VEDOLIZUMAB
     Route: 042
  4. ENTYVIO [Suspect]
     Active Substance: VEDOLIZUMAB
     Route: 042
  5. ENTYVIO [Suspect]
     Active Substance: VEDOLIZUMAB
     Route: 042
  6. ENTYVIO [Suspect]
     Active Substance: VEDOLIZUMAB
     Route: 042
  7. ENTYVIO [Suspect]
     Active Substance: VEDOLIZUMAB
     Route: 042
  8. ENTYVIO [Suspect]
     Active Substance: VEDOLIZUMAB
     Route: 042
  9. ENTYVIO [Suspect]
     Active Substance: VEDOLIZUMAB
     Route: 042
  10. ENTYVIO [Suspect]
     Active Substance: VEDOLIZUMAB
     Route: 042
  11. ENTYVIO [Suspect]
     Active Substance: VEDOLIZUMAB
     Route: 042
  12. ENTYVIO [Suspect]
     Active Substance: VEDOLIZUMAB
     Route: 042
     Dates: start: 20240516
  13. ENTYVIO [Suspect]
     Active Substance: VEDOLIZUMAB
     Indication: Crohn^s disease
     Dosage: 108 MILLIGRAM, Q2W (1 EVERY 2 WEEKS)
     Route: 058
     Dates: start: 20240808
  14. PANTOPRAZOLE SODIUM [Suspect]
     Active Substance: PANTOPRAZOLE SODIUM
     Indication: Product used for unknown indication
     Route: 065
  15. DILAUDID [Concomitant]
     Active Substance: HYDROMORPHONE HYDROCHLORIDE
     Indication: Back pain
     Route: 048
  16. GABAPENTIN [Concomitant]
     Active Substance: GABAPENTIN
     Indication: Back pain
     Dosage: 900 MILLIGRAM, TID (THREE TIMES A DAY)
     Route: 065
  17. NABILONE [Concomitant]
     Active Substance: NABILONE
     Route: 065
  18. OMEPRAZOLE [Concomitant]
     Active Substance: OMEPRAZOLE
     Route: 065

REACTIONS (19)
  - Cardiac arrest [Recovered/Resolved]
  - Abdominal pain [Unknown]
  - Faeces discoloured [Recovered/Resolved]
  - Musculoskeletal pain [Unknown]
  - Bronchitis [Unknown]
  - Oropharyngeal pain [Unknown]
  - Cough [Unknown]
  - Pyrexia [Not Recovered/Not Resolved]
  - Increased upper airway secretion [Unknown]
  - Burning sensation [Unknown]
  - Rhinorrhoea [Unknown]
  - Back pain [Unknown]
  - Gastritis [Unknown]
  - Oesophagitis [Unknown]
  - Paraesthesia [Unknown]
  - Blood pressure increased [Unknown]
  - Diarrhoea [Unknown]
  - Headache [Unknown]
  - Incorrect dose administered [Unknown]

NARRATIVE: CASE EVENT DATE: 20191201
